FAERS Safety Report 5919866-9 (Version None)
Quarter: 2008Q3

REPORT INFORMATION
  Report Type: 
  Country: None (occurrence: None)
  Receive Date: 20080909
  Receipt Date: 20070622
  Transmission Date: 20090109
  Serious: Yes (Hospitalization)
  Sender: FDA-Public Use
  Company Number: 163-20785-07061318

PATIENT
  Age: 63 Year
  Sex: Male

DRUGS (17)
  1. THALOMID [Suspect]
     Indication: MULTIPLE MYELOMA
     Dosage: 100 MG, 1 IN 1 D, ORAL
     Route: 048
     Dates: start: 20040911, end: 20070118
  2. DEXAMETHASONE TAB [Suspect]
     Indication: MULTIPLE MYELOMA
     Dosage: 20 MG, DAYS 1-4 EVERY 28 DAYS, ORAL
     Route: 048
     Dates: start: 20040911, end: 20070118
  3. ACYCLOVIR (ACICLOVIR) (TABLETS) [Concomitant]
  4. FLOMAX [Concomitant]
  5. LOTREL (LOTREL) (CAPSULES) [Concomitant]
  6. ALLEGRA [Concomitant]
  7. RANITIDINE HCL (RANITIDINE) (CAPSULES) [Concomitant]
  8. POTASSIUM CHLORIDE [Concomitant]
  9. PROCRIT (ERYTHROPOIETIN) (SOLUTION) [Concomitant]
  10. AREDIA (PAMIDRONATE DISODIUM) (SOLUTION) [Concomitant]
  11. FERROUS SULFATE (FERROUS SULFATE) (TABLETS) [Concomitant]
  12. NOVOLOG (INSULIN ASPART) (SOLUTION) [Concomitant]
  13. LORAZEPAM (LORAZEPAM) (TABLETS) [Concomitant]
  14. PENTAMIDINE ISETHIONATE (PENTAMIDINE ISETHIONATE) (300 MILLIGRAM, SOLU [Concomitant]
  15. OXYCODONE HCL (OXYCODONE HYDROCHLORIDE) (TABLETS) [Concomitant]
  16. OXYCONTIN (OXYCODONE HYDROCHLORIDE) (TABLETS) [Concomitant]
  17. BLOOD TRANSFUSION (BLOOD AND RELATED PRODUCTS) [Concomitant]

REACTIONS (1)
  - HIP ARTHROPLASTY [None]
